FAERS Safety Report 10658447 (Version 1)
Quarter: 2014Q4

REPORT INFORMATION
  Report Type: Spontaneous
  Country: US (occurrence: US)
  Receive Date: 20141217
  Receipt Date: 20141217
  Transmission Date: 20150529
  Serious: No
  Sender: FDA-Public Use
  Company Number: US-GLAXOSMITHKLINE-A1067695A

PATIENT

DRUGS (5)
  1. LORATADINE. [Concomitant]
     Active Substance: LORATADINE
  2. VOTRIENT [Suspect]
     Active Substance: PAZOPANIB HYDROCHLORIDE
     Indication: METASTATIC RENAL CELL CARCINOMA
     Dosage: DECREASED TO 400 MG THEN INCREASED TO 600 MG THEN DISCONTINUED FOR 3 DAYS THEN RESTARTED AT 400[...]
     Route: 048
     Dates: start: 20130105, end: 20140325
  3. IMODIUM [Concomitant]
     Active Substance: LOPERAMIDE HYDROCHLORIDE
  4. CHILDREN^S MULTI VIT [Concomitant]
  5. POTASSIUM GLUCONATE [Concomitant]
     Active Substance: POTASSIUM GLUCONATE

REACTIONS (16)
  - Gait disturbance [Recovering/Resolving]
  - Blood potassium decreased [Recovering/Resolving]
  - Vomiting [Recovering/Resolving]
  - Glossodynia [Recovering/Resolving]
  - Muscle atrophy [Recovering/Resolving]
  - Diarrhoea [Recovering/Resolving]
  - Paranasal sinus hypersecretion [Recovering/Resolving]
  - Dysgeusia [Recovering/Resolving]
  - Gingival discolouration [Recovering/Resolving]
  - Feeling abnormal [Recovering/Resolving]
  - Impaired driving ability [Recovering/Resolving]
  - Mucous membrane disorder [Recovering/Resolving]
  - Weight decreased [Recovering/Resolving]
  - Decreased appetite [Recovering/Resolving]
  - Stomatitis [Recovering/Resolving]
  - Tongue disorder [Recovering/Resolving]

NARRATIVE: CASE EVENT DATE: 20130111
